FAERS Safety Report 18468418 (Version 5)
Quarter: 2020Q4

REPORT INFORMATION
  Report Type: Spontaneous
  Country: CZ (occurrence: CZ)
  Receive Date: 20201105
  Receipt Date: 20201202
  Transmission Date: 20210114
  Serious: Yes (Other)
  Sender: FDA-Public Use
  Company Number: NVSC2020CZ293777

PATIENT
  Age: 55 Year
  Sex: Female

DRUGS (17)
  1. FLUDARABINE PHOSPHATE. [Suspect]
     Active Substance: FLUDARABINE PHOSPHATE
     Dosage: UNK(CYCLE 3 (RETREATMENT WITH FCR, FOLLOWING DISEASE PROGRESSION)
     Route: 065
  2. FLUDARABINE PHOSPHATE. [Suspect]
     Active Substance: FLUDARABINE PHOSPHATE
     Dosage: UNK(CYCLE 4 (RETREATMENT WITH FCR, FOLLOWING DISEASE PROGRESSION)
     Route: 065
  3. FLUDARABINE PHOSPHATE. [Suspect]
     Active Substance: FLUDARABINE PHOSPHATE
     Dosage: UNK(CYCLE 2 (RETREATMENT WITH FCR, FOLLOWING DISEASE PROGRESSION)
     Route: 065
  4. FLUDARABINE PHOSPHATE. [Suspect]
     Active Substance: FLUDARABINE PHOSPHATE
     Indication: CHRONIC LYMPHOCYTIC LEUKAEMIA
     Dosage: UNK, CYCLIC (DISCONTINUED PREMATURELY AFTER THE 5TH CYCLE)
     Route: 065
     Dates: start: 200811
  5. CYCLOPHOSPHAMIDE. [Suspect]
     Active Substance: CYCLOPHOSPHAMIDE
     Indication: CHRONIC LYMPHOCYTIC LEUKAEMIA
     Dosage: UNK, CYCLIC
     Route: 065
  6. BLEOMYCIN [Suspect]
     Active Substance: BLEOMYCIN SULFATE
     Indication: CHRONIC LYMPHOCYTIC LEUKAEMIA
     Dosage: UNK(FIRST DOSE (APPLIED TWICE) COMBINED WITH INTRAPLEURAL THERAPY)
     Route: 065
  7. FLUDARABINE PHOSPHATE. [Suspect]
     Active Substance: FLUDARABINE PHOSPHATE
     Dosage: UNK(DISCONTINUED PREMATURELY AFTER THE 5TH CYCLE)
     Route: 065
     Dates: start: 201402
  8. BLEOMYCIN [Suspect]
     Active Substance: BLEOMYCIN SULFATE
     Dosage: SECOND DOSE (APPLIED TWICE) COMBINED WITH INTRAPLEURAL THERAPY
     Route: 065
  9. DEXAMETHASONE. [Suspect]
     Active Substance: DEXAMETHASONE
     Indication: CHRONIC LYMPHOCYTIC LEUKAEMIA
     Dosage: CD TREATMENT (CYCLOPHOSPHAMIDE, DEXAMETHASONE) CYCLE 1-5
     Route: 065
  10. VENETOCLAX. [Concomitant]
     Active Substance: VENETOCLAX
     Dosage: UNK
     Route: 065
     Dates: start: 201802
  11. VENETOCLAX. [Concomitant]
     Active Substance: VENETOCLAX
     Indication: CHRONIC LYMPHOCYTIC LEUKAEMIA
     Dosage: 40 MG, QD
     Route: 065
  12. FLUDARABINE PHOSPHATE. [Suspect]
     Active Substance: FLUDARABINE PHOSPHATE
     Dosage: CYCLE 1 (RETREATMENT WITH FCR, FOLLOWING DISEASE PROGRESSION)
     Route: 065
     Dates: start: 201402
  13. CYCLOPHOSPHAMIDE. [Suspect]
     Active Substance: CYCLOPHOSPHAMIDE
     Dosage: UNK
     Route: 065
     Dates: start: 2008
  14. CYCLOPHOSPHAMIDE. [Suspect]
     Active Substance: CYCLOPHOSPHAMIDE
     Dosage: UNK(CYCLE 1-5 (RETREATMENT WITH FCR, FOLLOWING DISEASE PROGRESSION)
     Route: 065
     Dates: start: 201402
  15. CYCLOPHOSPHAMIDE. [Suspect]
     Active Substance: CYCLOPHOSPHAMIDE
     Dosage: UNK(CD TREATMENT (CYCLOPHOSPHAMIDE, DEXAMETHASONE) CYCLE 1-6
     Route: 065
  16. IDELALISIB [Suspect]
     Active Substance: IDELALISIB
     Indication: CHRONIC LYMPHOCYTIC LEUKAEMIA
     Dosage: WITH RITUXIMAB
     Route: 065
     Dates: start: 201603
  17. VENETOCLAX. [Concomitant]
     Active Substance: VENETOCLAX
     Dosage: 400 MG, QD
     Route: 065

REACTIONS (7)
  - Disease progression [Unknown]
  - Clostridium colitis [Unknown]
  - Neutropenia [Unknown]
  - Clostridium difficile colitis [Unknown]
  - Device related sepsis [Unknown]
  - Retroperitoneal lymphadenopathy [Unknown]
  - Febrile neutropenia [Unknown]

NARRATIVE: CASE EVENT DATE: 201702
